FAERS Safety Report 8288386-1 (Version None)
Quarter: 2012Q2

REPORT INFORMATION
  Report Type: 
  Country: None (occurrence: None)
  Receive Date: 20120416
  Receipt Date: 20120405
  Transmission Date: 20120825
  Serious: Yes (Hospitalization)
  Sender: FDA-Public Use
  Company Number: AU-BAXTER-2012BH006221

PATIENT
  Sex: Female

DRUGS (1)
  1. KIOVIG [Suspect]
     Route: 042
     Dates: start: 20120228, end: 20120228

REACTIONS (3)
  - HYPERHIDROSIS [None]
  - ELECTROCARDIOGRAM CHANGE [None]
  - ABDOMINAL PAIN [None]
